FAERS Safety Report 21107440 (Version 3)
Quarter: 2022Q3

REPORT INFORMATION
  Report Type: Report from Study
  Country: FR (occurrence: FR)
  Receive Date: 20220720
  Receipt Date: 20220811
  Transmission Date: 20221027
  Serious: Yes (Other)
  Sender: FDA-Public Use
  Company Number: FR-TAKEDA-FR201738254

PATIENT
  Age: 40 Year
  Sex: Male

DRUGS (13)
  1. TEDUGLUTIDE [Suspect]
     Active Substance: TEDUGLUTIDE
     Indication: Short-bowel syndrome
     Dosage: 3.28 MILLIGRAM, QD
     Route: 042
     Dates: end: 20180208
  2. TEDUGLUTIDE [Suspect]
     Active Substance: TEDUGLUTIDE
     Indication: Short-bowel syndrome
     Dosage: 3.28 MILLIGRAM, QD
     Route: 042
     Dates: end: 20180208
  3. TEDUGLUTIDE [Suspect]
     Active Substance: TEDUGLUTIDE
     Indication: Short-bowel syndrome
     Dosage: 3.28 MILLIGRAM, QD
     Route: 042
     Dates: end: 20180208
  4. TEDUGLUTIDE [Suspect]
     Active Substance: TEDUGLUTIDE
     Indication: Short-bowel syndrome
     Dosage: 3.28 MILLIGRAM, QD
     Route: 042
     Dates: end: 20180208
  5. LANSOPRAZOLE [Concomitant]
     Active Substance: LANSOPRAZOLE
     Indication: Gastrooesophageal reflux prophylaxis
     Dosage: 30 MILLIGRAM, BID
     Route: 048
  6. CEFTAZIDIME [Concomitant]
     Active Substance: CEFTAZIDIME
     Indication: Antibiotic therapy
     Dosage: 3 GRAM, TID
     Route: 065
     Dates: start: 201707, end: 201707
  7. CEFTAZIDIME [Concomitant]
     Active Substance: CEFTAZIDIME
     Indication: Antibiotic therapy
     Dosage: 2 GRAM
     Route: 065
     Dates: start: 201707, end: 201707
  8. INVANZ [Concomitant]
     Active Substance: ERTAPENEM SODIUM
     Indication: Salmonella sepsis
     Dosage: UNK UNK, QD
     Route: 058
     Dates: start: 20170311, end: 20170320
  9. CEFTRIAXONE SODIUM [Concomitant]
     Active Substance: CEFTRIAXONE SODIUM
     Indication: Salmonella sepsis
     Dosage: UNK UNK, QD
     Route: 058
     Dates: start: 20170310, end: 20170310
  10. VANCOMYCIN [Concomitant]
     Active Substance: VANCOMYCIN
     Indication: Salmonella sepsis
     Dosage: 2.4 GRAM, QD
     Route: 058
     Dates: start: 20170308, end: 20170309
  11. URSODIOL [Concomitant]
     Active Substance: URSODIOL
     Indication: Prophylaxis
     Dosage: 500 MILLIGRAM, TID
     Route: 048
  12. VITAMIN D [Concomitant]
     Active Substance: VITAMIN D NOS
     Indication: Prophylaxis
     Dosage: 1 DOSAGE FORM
     Route: 048
  13. VITAMIN B12 [Concomitant]
     Active Substance: CYANOCOBALAMIN
     Indication: Prophylaxis
     Dosage: 1 DOSAGE FORM
     Route: 058

REACTIONS (1)
  - Cardiac dysfunction [Recovered/Resolved with Sequelae]

NARRATIVE: CASE EVENT DATE: 20170517
